FAERS Safety Report 7762158-6 (Version None)
Quarter: 2011Q3

REPORT INFORMATION
  Report Type: 
  Country: None (occurrence: None)
  Receive Date: 20110920
  Receipt Date: 20110906
  Transmission Date: 20111222
  Serious: Yes (Hospitalization)
  Sender: FDA-Public Use
  Company Number: JP-SANOFI-AVENTIS-2011SA059166

PATIENT
  Age: 85 Year
  Sex: Male

DRUGS (5)
  1. CLOPIDOGREL BISULFATE [Suspect]
     Route: 048
     Dates: end: 20110101
  2. AMLODIPINE BESYLATE [Suspect]
     Route: 048
     Dates: end: 20110101
  3. LANSOPRAZOLE [Suspect]
     Route: 048
     Dates: end: 20110101
  4. DILTIAZEM HCL [Concomitant]
     Route: 048
  5. ASPIRIN [Concomitant]
     Route: 048

REACTIONS (2)
  - RENAL FAILURE [None]
  - COLITIS MICROSCOPIC [None]
